FAERS Safety Report 13010335 (Version 1)
Quarter: 2016Q4

REPORT INFORMATION
  Report Type: Spontaneous
  Country: US (occurrence: US)
  Receive Date: 20161207
  Receipt Date: 20161207
  Transmission Date: 20170207
  Serious: Yes (Other)
  Sender: FDA-Public Use
  Company Number: None

PATIENT
  Age: 70 Year
  Sex: Female
  Weight: 63 kg

DRUGS (3)
  1. HORIZANT [Suspect]
     Active Substance: GABAPENTIN ENACARBIL
     Indication: RESTLESS LEGS SYNDROME
     Dosage: OTHER FREQUENCY:AT 5 PM DAILY;?
     Route: 048
     Dates: start: 20161203, end: 20161206
  2. TRAMADOL. [Concomitant]
     Active Substance: TRAMADOL
  3. DOXEPIN [Concomitant]
     Active Substance: DOXEPIN

REACTIONS (6)
  - Headache [None]
  - Somatic dysfunction [None]
  - Condition aggravated [None]
  - Vision blurred [None]
  - Diarrhoea [None]
  - Gait disturbance [None]

NARRATIVE: CASE EVENT DATE: 20161204
